FAERS Safety Report 9295472 (Version 1)
Quarter: 2013Q1

REPORT INFORMATION
  Report Type: Spontaneous
  Country: US (occurrence: None)
  Receive Date: 20121214
  Receipt Date: 20121214
  Transmission Date: 20140127
  Serious: Yes (Other)
  Sender: FDA-Public Use
  Company Number: 1210USA000513

PATIENT
  Sex: Female

DRUGS (4)
  1. JANUVIA(SITAGLIPTIN PHOSPHATE) FILM-COATED TABLET [Suspect]
  2. VICTOZA(LIRAGLUTIDE) SOLUTION FOR INJECTION, 6MG/ML [Suspect]
  3. LANTUS(INSULIN GLARGINE) [Suspect]
     Route: 058
  4. LEVEMIR (INSULIN DETEMIR) [Suspect]
     Route: 058

REACTIONS (2)
  - Hypersensitivity [None]
  - Rash [None]
